FAERS Safety Report 10255865 (Version 2)
Quarter: 2014Q3

REPORT INFORMATION
  Report Type: Spontaneous
  Country: JP (occurrence: JP)
  Receive Date: 20140624
  Receipt Date: 20140919
  Transmission Date: 20150326
  Serious: Yes (Hospitalization)
  Sender: FDA-Public Use
  Company Number: JP-BAYER-2014-088493

PATIENT
  Age: 61 Year
  Sex: Male
  Weight: 57 kg

DRUGS (14)
  1. STIVARGA [Suspect]
     Active Substance: REGORAFENIB
     Indication: GASTROINTESTINAL STROMAL TUMOUR
     Dosage: 120 MG, QD (FOR 11 DAYS)
     Route: 048
     Dates: start: 20140514, end: 20140524
  2. STIVARGA [Suspect]
     Active Substance: REGORAFENIB
     Indication: GASTROINTESTINAL STROMAL TUMOUR
     Dosage: 120 MG, QD (3 WEEKS ON AND 1 WEEK OFF)
     Route: 048
     Dates: start: 20140702, end: 20140722
  3. RHYTHMY [Concomitant]
     Active Substance: RILMAZAFONE HYDROCHLORIDE
     Dosage: DAILY DOSE 1 MG
     Route: 048
     Dates: start: 20140515, end: 20140516
  4. TAKEPRON [Concomitant]
     Active Substance: LANSOPRAZOLE
     Dosage: DAILY DOSE 15 MG
     Route: 048
     Dates: start: 20140521
  5. SYMBICORT [Concomitant]
     Active Substance: BUDESONIDE\FORMOTEROL FUMARATE DIHYDRATE
     Dosage: UNK
     Route: 055
     Dates: start: 20140521
  6. AMOBAN [Concomitant]
     Active Substance: ZOPICLONE
     Dosage: UNK
     Route: 048
     Dates: start: 20140524
  7. STIVARGA [Suspect]
     Active Substance: REGORAFENIB
     Indication: GASTROINTESTINAL STROMAL TUMOUR
     Dosage: 120 MG, QD (3 WEEKS ON AND 1 WEEK OFF)
     Route: 048
     Dates: start: 20140730, end: 20140819
  8. HIRUDOID [Concomitant]
     Active Substance: GLYCOSAMINOGLYCANS
     Indication: DRUG TOXICITY PROPHYLAXIS
     Dosage: UNK
     Route: 061
     Dates: start: 20140520
  9. OPSO [Concomitant]
     Active Substance: MORPHINE HYDROCHLORIDE
     Dosage: 5 MG, PRN
     Route: 048
     Dates: start: 20140515
  10. INDOMETACIN [Concomitant]
     Active Substance: INDOMETHACIN
     Dosage: UNK
     Route: 062
     Dates: start: 20140516
  11. AMLODIPINE [Concomitant]
     Active Substance: AMLODIPINE BESYLATE
     Dosage: UNK
     Route: 048
     Dates: start: 20140523
  12. STIVARGA [Suspect]
     Active Substance: REGORAFENIB
     Indication: GASTROINTESTINAL STROMAL TUMOUR
     Dosage: 120 MG, QD (3 WEEKS ON AND 1 WEEK OFF)
     Route: 048
     Dates: start: 20140604, end: 20140624
  13. NOVAMIN [Concomitant]
     Active Substance: PROCHLORPERAZINE MALEATE
     Dosage: 5 MG, PRN
     Route: 048
     Dates: start: 20140515
  14. TAFLUPROST [Concomitant]
     Active Substance: TAFLUPROST
     Dosage: UNK
     Route: 047
     Dates: start: 20140521

REACTIONS (2)
  - Anaemia [Recovered/Resolved]
  - Haematuria [Recovered/Resolved]

NARRATIVE: CASE EVENT DATE: 201405
